FAERS Safety Report 11739860 (Version 3)
Quarter: 2016Q1

REPORT INFORMATION
  Report Type: Spontaneous
  Country: US (occurrence: US)
  Receive Date: 20151113
  Receipt Date: 20160208
  Transmission Date: 20160525
  Serious: Yes (Other)
  Sender: FDA-Public Use
  Company Number: US-PFIZER INC-2015388715

PATIENT
  Age: 70 Year
  Sex: Male
  Weight: 75 kg

DRUGS (1)
  1. VIAGRA [Suspect]
     Active Substance: SILDENAFIL CITRATE
     Indication: ERECTILE DYSFUNCTION
     Dosage: 100 MG, AS NEEDED
     Dates: start: 20140310, end: 20140311

REACTIONS (2)
  - Headache [Recovered/Resolved]
  - Deafness unilateral [Not Recovered/Not Resolved]

NARRATIVE: CASE EVENT DATE: 20140311
